FAERS Safety Report 6081374-5 (Version None)
Quarter: 2009Q1

REPORT INFORMATION
  Report Type: 
  Country: None (occurrence: None)
  Receive Date: 20090218
  Receipt Date: 20090209
  Transmission Date: 20090719
  Serious: Yes (Other)
  Sender: FDA-Public Use
  Company Number: US-JNJFOC-20090202792

PATIENT
  Sex: Female
  Weight: 49.9 kg

DRUGS (3)
  1. DURAGESIC-100 [Suspect]
     Indication: BACK PAIN
     Route: 062
  2. FLEXERIL [Suspect]
     Indication: MUSCLE SPASMS
     Dosage: 10 MG AS NEEDED
     Route: 048
  3. PEROCET [Concomitant]
     Indication: BACK PAIN
     Dosage: 10-325 MG AS NEEDED
     Route: 048

REACTIONS (5)
  - ARACHNOIDITIS [None]
  - DRUG INEFFECTIVE [None]
  - EXPIRED DRUG ADMINISTERED [None]
  - INAPPROPRIATE SCHEDULE OF DRUG ADMINISTRATION [None]
  - PRODUCT QUALITY ISSUE [None]
